FAERS Safety Report 10142850 (Version 2)
Quarter: 2014Q3

REPORT INFORMATION
  Report Type: Spontaneous
  Country: JP (occurrence: JP)
  Receive Date: 20140430
  Receipt Date: 20140923
  Transmission Date: 20150326
  Serious: No
  Sender: FDA-Public Use
  Company Number: JP-NAPPMUNDI-GBR-2014-0018099

PATIENT
  Age: 42 Year
  Sex: Male

DRUGS (2)
  1. NORSPAN [Suspect]
     Active Substance: BUPRENORPHINE
     Indication: BACK PAIN
     Dosage: 5 MCG, Q1H
     Route: 062
     Dates: start: 20140306, end: 201403
  2. NORSPAN 10 MG [Suspect]
     Active Substance: BUPRENORPHINE
     Indication: BACK PAIN
     Dosage: 10 MCG, Q1H
     Route: 062
     Dates: start: 201403, end: 20140404

REACTIONS (3)
  - Application site erythema [Unknown]
  - Application site pruritus [Unknown]
  - Application site discolouration [Unknown]

NARRATIVE: CASE EVENT DATE: 20140309
